FAERS Safety Report 16441693 (Version 1)
Quarter: 2019Q2

REPORT INFORMATION
  Report Type: Spontaneous
  Country: CN (occurrence: CN)
  Receive Date: 20190617
  Receipt Date: 20190617
  Transmission Date: 20190711
  Serious: Yes (Hospitalization, Other)
  Sender: FDA-Public Use
  Company Number: CN-SA-2019SA161710

PATIENT
  Age: 61 Year
  Sex: Male

DRUGS (7)
  1. VILDAGLIPTIN [Suspect]
     Active Substance: VILDAGLIPTIN
     Indication: DIABETES MELLITUS
     Dosage: 50 MG, BID
  2. GLIMEPIRIDE. [Suspect]
     Active Substance: GLIMEPIRIDE
     Indication: DIABETES MELLITUS
     Dosage: 2 MG, QD
  3. INSULIN [Concomitant]
     Active Substance: INSULIN NOS
     Dosage: 18U IN THE MORNING, 18 U AT NOON AND 16 U AT NIGHT, TID
  4. METFORMIN HYDROCHLORIDE. [Suspect]
     Active Substance: METFORMIN HYDROCHLORIDE
     Indication: DIABETES MELLITUS
     Dosage: 0.425 G, BID
  5. DAPAGLIFLOZIN. [Suspect]
     Active Substance: DAPAGLIFLOZIN
     Indication: DIABETES MELLITUS
     Dosage: 10 MG, QD
     Route: 048
  6. INSULIN [Concomitant]
     Active Substance: INSULIN NOS
     Indication: DIABETES MELLITUS
     Dosage: UNK UNK, UNK
  7. INSULIN [Concomitant]
     Active Substance: INSULIN NOS
     Dosage: 24 U, QD, DOSE WERE REDUCED

REACTIONS (4)
  - Insulin autoimmune syndrome [Unknown]
  - Vomiting [Unknown]
  - Blood insulin increased [Recovering/Resolving]
  - Diabetes mellitus inadequate control [Recovering/Resolving]
